FAERS Safety Report 9198352 (Version 1)
Quarter: 2013Q1

REPORT INFORMATION
  Report Type: Spontaneous
  Country: US (occurrence: None)
  Receive Date: 20130327
  Receipt Date: 20130327
  Transmission Date: 20140127
  Serious: Yes (Other)
  Sender: FDA-Public Use
  Company Number: None

PATIENT
  Sex: Female
  Weight: 49 kg

DRUGS (1)
  1. ROC RETINOL CORREXION DEEP WRINTKLE NIGHT CREAML [Suspect]
     Indication: SKIN WRINKLING
     Dosage: DIME, 1XDAY, TOPICAL
     Route: 061

REACTIONS (5)
  - Skin warm [None]
  - Rash [None]
  - Eye swelling [None]
  - Eye irritation [None]
  - Adverse reaction [None]
